FAERS Safety Report 9850948 (Version 2)
Quarter: 2014Q1

REPORT INFORMATION
  Report Type: Spontaneous
  Country: US (occurrence: US)
  Receive Date: 20140128
  Receipt Date: 20140128
  Transmission Date: 20141002
  Serious: Yes (Hospitalization, Other)
  Sender: FDA-Public Use
  Company Number: US-B.I. PHARMACEUTICALS,INC./RIDGEFIELD-2013-BI-24029BP

PATIENT
  Age: 80 Year
  Sex: Female
  Weight: 77.11 kg

DRUGS (19)
  1. PRADAXA [Suspect]
     Dosage: 300 MG
     Route: 048
     Dates: start: 20101121, end: 20111111
  2. PERCOCET [Concomitant]
     Route: 048
  3. K-DUR [Concomitant]
     Dosage: 30 MEQ
     Route: 048
  4. OXYCONTIN [Concomitant]
     Dosage: 20 MG
     Route: 048
  5. IMDUR [Concomitant]
     Dosage: 120 MG
     Route: 048
  6. CALCIUM + D [Concomitant]
     Route: 048
  7. DOCUSATE SODIUM [Concomitant]
     Route: 048
  8. FISH OIL [Concomitant]
     Route: 048
  9. MULTIVITAMIN [Concomitant]
     Route: 048
  10. NITROSTAT [Concomitant]
     Route: 060
  11. HYZAAR [Concomitant]
     Route: 048
  12. GLUCOSAMINE [Concomitant]
     Route: 048
  13. ACYCLOVIR [Concomitant]
     Route: 048
  14. TRAZODONE [Concomitant]
     Route: 048
  15. OXYBUTYNIN [Concomitant]
     Route: 048
  16. ROBAXIN [Concomitant]
     Route: 048
  17. PRAVACHOL [Concomitant]
     Dosage: 20 MG
     Route: 048
  18. CARTIA [Concomitant]
     Dosage: 300 MG
     Route: 048
  19. ASPIRIN [Concomitant]
     Dosage: 81 MG
     Route: 048

REACTIONS (2)
  - Rectal haemorrhage [Unknown]
  - Ischaemic stroke [Unknown]
